FAERS Safety Report 9605106 (Version 1)
Quarter: 2013Q4

REPORT INFORMATION
  Report Type: Spontaneous
  Country: NL (occurrence: NL)
  Receive Date: 20131008
  Receipt Date: 20131008
  Transmission Date: 20140711
  Serious: Yes (Hospitalization)
  Sender: FDA-Public Use
  Company Number: NL-TEVA-434947ISR

PATIENT
  Age: 63 Year
  Sex: Female

DRUGS (2)
  1. AMOXICILLINE [Suspect]
     Indication: PRODUCT USED FOR UNKNOWN INDICATION
     Dosage: 1500 MILLIGRAM DAILY; 3 TIMES DAILY ONE PIECE
     Route: 048
     Dates: start: 20130312
  2. PROBIOTICS [Suspect]
     Indication: ADVERSE REACTION
     Dosage: EXTRA INFO: ??
     Route: 048
     Dates: start: 20130319

REACTIONS (2)
  - Pyrexia [Recovered/Resolved]
  - Mania [Recovered/Resolved]
